FAERS Safety Report 25715774 (Version 1)
Quarter: 2025Q3

REPORT INFORMATION
  Report Type: Spontaneous
  Country: US (occurrence: US)
  Receive Date: 20250822
  Receipt Date: 20250822
  Transmission Date: 20251021
  Serious: Yes (Life-Threatening, Hospitalization)
  Sender: MYLAN
  Company Number: US-MYLANLABS-2025M1071134

PATIENT
  Age: 47 Year
  Sex: Female

DRUGS (16)
  1. NITROGLYCERIN [Suspect]
     Active Substance: NITROGLYCERIN
     Indication: Arteriospasm coronary
  2. NITROGLYCERIN [Suspect]
     Active Substance: NITROGLYCERIN
     Route: 022
  3. NITROGLYCERIN [Suspect]
     Active Substance: NITROGLYCERIN
     Route: 022
  4. NITROGLYCERIN [Suspect]
     Active Substance: NITROGLYCERIN
  5. Amfetamine sulfate;Dexamfetamine [Concomitant]
     Indication: Attention deficit hyperactivity disorder
     Dosage: 20 MILLIGRAM, QD
  6. Amfetamine sulfate;Dexamfetamine [Concomitant]
     Dosage: 20 MILLIGRAM, QD
     Route: 065
  7. Amfetamine sulfate;Dexamfetamine [Concomitant]
     Dosage: 20 MILLIGRAM, QD
     Route: 065
  8. Amfetamine sulfate;Dexamfetamine [Concomitant]
     Dosage: 20 MILLIGRAM, QD
  9. DILTIAZEM [Concomitant]
     Active Substance: DILTIAZEM
     Indication: Angina pectoris
     Dosage: 240 MILLIGRAM, QD
  10. DILTIAZEM [Concomitant]
     Active Substance: DILTIAZEM
     Dosage: 240 MILLIGRAM, QD
     Route: 048
  11. DILTIAZEM [Concomitant]
     Active Substance: DILTIAZEM
     Dosage: 240 MILLIGRAM, QD
     Route: 048
  12. DILTIAZEM [Concomitant]
     Active Substance: DILTIAZEM
     Dosage: 240 MILLIGRAM, QD
  13. ISOSORBIDE MONONITRATE [Concomitant]
     Active Substance: ISOSORBIDE MONONITRATE
     Indication: Angina pectoris
     Dosage: 30 MILLIGRAM, QD
  14. ISOSORBIDE MONONITRATE [Concomitant]
     Active Substance: ISOSORBIDE MONONITRATE
     Dosage: 30 MILLIGRAM, QD
     Route: 065
  15. ISOSORBIDE MONONITRATE [Concomitant]
     Active Substance: ISOSORBIDE MONONITRATE
     Dosage: 30 MILLIGRAM, QD
     Route: 065
  16. ISOSORBIDE MONONITRATE [Concomitant]
     Active Substance: ISOSORBIDE MONONITRATE
     Dosage: 30 MILLIGRAM, QD

REACTIONS (1)
  - Therapy non-responder [Unknown]
